FAERS Safety Report 4600431-0 (Version None)
Quarter: 2005Q1

REPORT INFORMATION
  Report Type: 
  Country: None (occurrence: None)
  Receive Date: 20050304
  Receipt Date: 20050218
  Transmission Date: 20050727
  Serious: Yes (Other)
  Sender: FDA-Public Use
  Company Number: 200510740BCC

PATIENT
  Age: 64 Year
  Sex: Female
  Weight: 77.1115 kg

DRUGS (5)
  1. ALEVE (CAPLET) [Suspect]
     Indication: BACK PAIN
     Dosage: SEE IMAGE
     Route: 048
     Dates: start: 20050210, end: 20050212
  2. ALEVE (CAPLET) [Suspect]
     Indication: BACK PAIN
     Dosage: SEE IMAGE
     Route: 048
     Dates: start: 20050213
  3. ATENOLOL [Concomitant]
  4. ATACAND [Concomitant]
  5. TRIAMTERENE [Concomitant]

REACTIONS (3)
  - BLOOD PRESSURE DECREASED [None]
  - BLOOD PRESSURE INCREASED [None]
  - FEELING ABNORMAL [None]
